FAERS Safety Report 6678621-5 (Version None)
Quarter: 2010Q2

REPORT INFORMATION
  Report Type: 
  Country: None (occurrence: None)
  Receive Date: 20100412
  Receipt Date: 20100412
  Transmission Date: 20101027
  Serious: Yes (Hospitalization)
  Sender: FDA-Public Use
  Company Number: None

PATIENT
  Age: 55 Year
  Sex: Male
  Weight: 88.2 kg

DRUGS (8)
  1. ABACAVIR SULFATE AND LAMIVUDINE [Suspect]
     Indication: HIV INFECTION
     Dosage: 600/300 PO DAILY
     Route: 048
     Dates: start: 20091029, end: 20091109
  2. ACETAMINOPHEN [Concomitant]
  3. ACYCLOVIR [Concomitant]
  4. CEFEPIME [Concomitant]
  5. DIGOXIN [Concomitant]
  6. PROCHOROPERAZINE [Concomitant]
  7. RALTEGRAVIR [Concomitant]
  8. LEUKINE [Concomitant]

REACTIONS (4)
  - CLOSTRIDIAL INFECTION [None]
  - FEBRILE NEUTROPENIA [None]
  - HYPERSENSITIVITY [None]
  - SEBORRHOEIC DERMATITIS [None]
